FAERS Safety Report 12312395 (Version 1)
Quarter: 2016Q2

REPORT INFORMATION
  Report Type: Spontaneous
  Country: US (occurrence: US)
  Receive Date: 20160428
  Receipt Date: 20160428
  Transmission Date: 20160815
  Serious: No
  Sender: FDA-Public Use
  Company Number: PHEH2015US009448

PATIENT
  Sex: Female

DRUGS (1)
  1. HYDROCHLOROTHIAZIDE,VALSARTAN [Suspect]
     Active Substance: HYDROCHLOROTHIAZIDE\VALSARTAN
     Indication: PRODUCT USED FOR UNKNOWN INDICATION
     Route: 065
     Dates: start: 20150313

REACTIONS (8)
  - Swollen tongue [Unknown]
  - Dizziness [Unknown]
  - Joint swelling [Unknown]
  - Chemical burn of skin [Unknown]
  - Rash [Recovered/Resolved]
  - Nausea [Unknown]
  - Thinking abnormal [Unknown]
  - Rash generalised [Unknown]

NARRATIVE: CASE EVENT DATE: 20150323
